FAERS Safety Report 19866782 (Version 1)
Quarter: 2021Q3

REPORT INFORMATION
  Report Type: Spontaneous
  Country: US (occurrence: US)
  Receive Date: 20210922
  Receipt Date: 20210922
  Transmission Date: 20211014
  Serious: Yes (Other)
  Sender: FDA-Public Use
  Company Number: US-SA-2021SA309790

PATIENT
  Sex: Male

DRUGS (6)
  1. ABIRATERONE. [Suspect]
     Active Substance: ABIRATERONE ACETATE
     Dosage: UNK
  2. TAXOTERE [Suspect]
     Active Substance: DOCETAXEL
     Dosage: UNK
  3. RUBRACA [Concomitant]
     Active Substance: RUCAPARIB CAMSYLATE
     Indication: PROSTATE CANCER
     Dosage: UNK
  4. ENZALUTAMIDE [Suspect]
     Active Substance: ENZALUTAMIDE
     Dosage: UNK
  5. JEVTANA [Suspect]
     Active Substance: CABAZITAXEL
     Dosage: UNK
  6. SIPULEUCEL?T [Suspect]
     Active Substance: SIPULEUCEL-T
     Dosage: UNK

REACTIONS (2)
  - Malignant neoplasm progression [Unknown]
  - Prostate cancer [Unknown]
